FAERS Safety Report 10643317 (Version 1)
Quarter: 2014Q4

REPORT INFORMATION
  Report Type: Report from Study
  Country: US (occurrence: None)
  Receive Date: 20141128
  Receipt Date: 20141128
  Transmission Date: 20150529
  Serious: Yes (Other)
  Sender: FDA-Public Use
  Company Number: 2022146

PATIENT
  Age: 56 Year
  Sex: Male
  Weight: 76.8 kg

DRUGS (3)
  1. RITUXIMAB [Suspect]
     Active Substance: RITUXIMAB
     Indication: CHRONIC LYMPHOCYTIC LEUKAEMIA
     Dosage: 375 MG/M2 MILLIGRAM (S)/SQ. METER (UKNOWN)
     Dates: start: 20100913, end: 20110202
  2. PENTOSTATIN. [Suspect]
     Active Substance: PENTOSTATIN
     Indication: CHRONIC LYMPHOCYTIC LEUKAEMIA
     Dosage: 4 MG/M2 MILLIGRAM (S)/SQ.METER, (UKNWON)
     Dates: start: 20100913, end: 20110202
  3. CYCLOPHOPHAMIDE [Suspect]
     Active Substance: CYCLOPHOSPHAMIDE
     Indication: CHRONIC LYMPHOCYTIC LEUKAEMIA
     Dosage: 600 MG/M 2 MILLIGRAM(S)SQ.METER,(UKNOWN)
     Dates: start: 20100913, end: 20110202

REACTIONS (1)
  - Neutrophil count decreased [None]

NARRATIVE: CASE EVENT DATE: 20110425
